FAERS Safety Report 6252676-4 (Version None)
Quarter: 2009Q3

REPORT INFORMATION
  Report Type: 
  Country: None (occurrence: None)
  Receive Date: 20090701
  Receipt Date: 20090619
  Transmission Date: 20100115
  Serious: Yes (Hospitalization, Other)
  Sender: FDA-Public Use
  Company Number: PHHY2009FR25322

PATIENT
  Sex: Male

DRUGS (1)
  1. EXELON [Suspect]
     Indication: DEMENTIA
     Dosage: 9.5 MG DAILY
     Route: 062

REACTIONS (6)
  - CONTUSION [None]
  - DEMENTIA [None]
  - FALL [None]
  - HALLUCINATION [None]
  - SUICIDE ATTEMPT [None]
  - WEIGHT DECREASED [None]
